FAERS Safety Report 8001362-9 (Version None)
Quarter: 2011Q4

REPORT INFORMATION
  Report Type: 
  Country: None (occurrence: None)
  Receive Date: 20111222
  Receipt Date: 20111220
  Transmission Date: 20120403
  Serious: Yes (Death)
  Sender: FDA-Public Use
  Company Number: FR-PFIZER INC-2011308242

PATIENT
  Age: 90 Year
  Sex: Female

DRUGS (6)
  1. DIGOXIN [Concomitant]
  2. AMLODIPINE BESYLATE [Concomitant]
     Dosage: 5 MG, 1X/DAY
  3. PERINDOPRIL ERBUMINE [Concomitant]
     Dosage: 5 MG, 1X/DAY
  4. LEVOFLOXACIN [Suspect]
     Indication: PNEUMONIA
     Dosage: 1 G DAILY
     Dates: start: 20110623
  5. PIPERACILLIN AND TAZOBACTAM [Suspect]
     Indication: PNEUMONIA
     Dosage: 12 G DAILY
     Dates: start: 20110623
  6. BISOPROLOL FUMARATE [Concomitant]
     Dosage: 2.5 MG, 1X/DAY

REACTIONS (2)
  - COMA [None]
  - ENCEPHALOPATHY [None]
